FAERS Safety Report 13030713 (Version 7)
Quarter: 2019Q4

REPORT INFORMATION
  Report Type: Report from Study
  Country: JP (occurrence: JP)
  Receive Date: 20161215
  Receipt Date: 20191024
  Transmission Date: 20200122
  Serious: Yes (Death, Hospitalization, Other)
  Sender: FDA-Public Use
  Company Number: JP-ARIAD PHARMACEUTICALS, INC-2016JP007448

PATIENT
  Age: 71 Year
  Sex: Male

DRUGS (14)
  1. PONATINIB [Suspect]
     Active Substance: PONATINIB
     Dosage: 15 MILLIGRAM, QD
     Route: 048
     Dates: start: 20161227, end: 20161229
  2. PONATINIB [Suspect]
     Active Substance: PONATINIB
     Dosage: 30 MILLIGRAM, QD
     Route: 048
     Dates: start: 20161230, end: 20170103
  3. AMLODIPINE                         /00972402/ [Concomitant]
     Active Substance: AMLODIPINE BESYLATE
     Indication: PRODUCT USED FOR UNKNOWN INDICATION
     Dosage: UNK
     Route: 065
  4. RINDERON V [Concomitant]
     Active Substance: BETAMETHASONE VALERATE
     Indication: PHLEBITIS
     Dosage: UNK
     Route: 065
  5. CEFAZOLIN SODIUM. [Concomitant]
     Active Substance: CEFAZOLIN SODIUM
     Indication: PHLEBITIS
     Dosage: UNK
     Route: 065
  6. WARFARIN                           /00014803/ [Concomitant]
     Active Substance: WARFARIN
     Indication: FIBRIN D DIMER INCREASED
  7. PIPERACILLIN AND TAZOBACTAM [Concomitant]
     Active Substance: PIPERACILLIN SODIUM\TAZOBACTAM SODIUM
     Indication: PYREXIA
     Dosage: UNK
     Route: 042
  8. LANSOPRAZOLE. [Concomitant]
     Active Substance: LANSOPRAZOLE
     Indication: PROPHYLAXIS
     Dosage: UNK
     Route: 065
  9. ACELIO [Concomitant]
     Active Substance: ACETAMINOPHEN
     Indication: PYREXIA
     Dosage: UNK
     Route: 041
  10. PONATINIB [Suspect]
     Active Substance: PONATINIB
     Dosage: 45 MILLIGRAM, QD
     Route: 048
     Dates: start: 20170104, end: 20170106
  11. WARFARIN                           /00014803/ [Concomitant]
     Active Substance: WARFARIN
     Indication: THROMBOPHLEBITIS
     Dosage: UNK
     Route: 065
     Dates: start: 20161216, end: 20170107
  12. PONATINIB [Suspect]
     Active Substance: PONATINIB
     Indication: ACUTE LYMPHOCYTIC LEUKAEMIA
     Dosage: 45 MILLIGRAM, QD
     Route: 048
     Dates: start: 20161206, end: 20161212
  13. PONATINIB [Suspect]
     Active Substance: PONATINIB
     Dosage: 30 MILLIGRAM, QD
     Route: 048
     Dates: start: 20161219, end: 20161226
  14. FLUCONAZOLE. [Concomitant]
     Active Substance: FLUCONAZOLE
     Indication: PROPHYLAXIS
     Dosage: UNK
     Route: 065

REACTIONS (7)
  - Acute lymphocytic leukaemia [Fatal]
  - Thrombophlebitis [Recovered/Resolved]
  - Therapeutic product effect incomplete [Unknown]
  - Platelet count decreased [Recovered/Resolved]
  - Fibrin D dimer increased [Recovered/Resolved]
  - Pyrexia [Recovered/Resolved]
  - Thrombophlebitis [Recovered/Resolved]

NARRATIVE: CASE EVENT DATE: 20161212
